FAERS Safety Report 8175620-1 (Version None)
Quarter: 2012Q1

REPORT INFORMATION
  Report Type: 
  Country: None (occurrence: None)
  Receive Date: 20120301
  Receipt Date: 20120221
  Transmission Date: 20120608
  Serious: No
  Sender: FDA-Public Use
  Company Number: US-BIOGENIDEC-2012BI006540

PATIENT
  Sex: Female

DRUGS (1)
  1. TYSABRI [Suspect]
     Indication: MULTIPLE SCLEROSIS
     Route: 042
     Dates: start: 20101027

REACTIONS (8)
  - BONE PAIN [None]
  - CHEILITIS [None]
  - VIRAL INFECTION [None]
  - CHAPPED LIPS [None]
  - HYPOAESTHESIA [None]
  - FIBROMYALGIA [None]
  - MENSTRUAL DISORDER [None]
  - SWOLLEN TONGUE [None]
